FAERS Safety Report 18252355 (Version 1)
Quarter: 2020Q3

REPORT INFORMATION
  Report Type: Spontaneous
  Country: US (occurrence: US)
  Receive Date: 20200910
  Receipt Date: 20200910
  Transmission Date: 20201103
  Serious: No
  Sender: FDA-Public Use
  Company Number: US-FARMAPROD-202006-0859

PATIENT
  Sex: Male

DRUGS (9)
  1. GABAPENTIN. [Concomitant]
     Active Substance: GABAPENTIN
  2. SIMVASTATIN. [Concomitant]
     Active Substance: SIMVASTATIN
  3. OXERVATE [Suspect]
     Active Substance: CENEGERMIN-BKBJ
     Indication: NEUROTROPHIC KERATOPATHY
     Route: 047
     Dates: start: 20200610
  4. ACICLOVIR [Concomitant]
     Active Substance: ACYCLOVIR
  5. METFORMIN HCL [Concomitant]
     Active Substance: METFORMIN HYDROCHLORIDE
  6. ASPIR [Concomitant]
     Active Substance: ASPIRIN
     Dosage: 81 MG DELAY RELEASE TABLET
  7. GLIPIZIDE. [Concomitant]
     Active Substance: GLIPIZIDE
  8. TRADJENTA [Concomitant]
     Active Substance: LINAGLIPTIN
  9. CARVEDILOL. [Concomitant]
     Active Substance: CARVEDILOL

REACTIONS (1)
  - Cardiac disorder [Unknown]
